FAERS Safety Report 8262260-9 (Version None)
Quarter: 2012Q2

REPORT INFORMATION
  Report Type: 
  Country: None (occurrence: None)
  Receive Date: 20120405
  Receipt Date: 20120403
  Transmission Date: 20120825
  Serious: Yes (Death)
  Sender: FDA-Public Use
  Company Number: EG-ROCHE-1056024

PATIENT
  Age: 54 Year
  Sex: Male

DRUGS (2)
  1. RIBAVIRIN [Suspect]
     Indication: HEPATITIS C
     Route: 048
  2. PEGASYS [Suspect]
     Indication: HEPATITIS C
     Route: 058

REACTIONS (1)
  - HAEMATEMESIS [None]
